FAERS Safety Report 6619371-0 (Version None)
Quarter: 2010Q1

REPORT INFORMATION
  Report Type: 
  Country: None (occurrence: None)
  Receive Date: 20100309
  Receipt Date: 20100301
  Transmission Date: 20100710
  Serious: No
  Sender: FDA-Public Use
  Company Number: US-ASTRAZENECA-2009UW20441

PATIENT
  Age: 360 Month
  Sex: Female
  Weight: 86.2 kg

DRUGS (4)
  1. SEROQUEL [Suspect]
     Indication: SCHIZOPHRENIA
     Route: 048
     Dates: start: 20061201, end: 20090801
  2. SEROQUEL [Suspect]
     Indication: BIPOLAR DISORDER
     Route: 048
     Dates: start: 20061201, end: 20090801
  3. LEXAPRO [Concomitant]
     Indication: DEPRESSION
     Dates: start: 20061201
  4. ABILIFY [Concomitant]
     Indication: DEPRESSION
     Dates: start: 20061201

REACTIONS (1)
  - TYPE 2 DIABETES MELLITUS [None]
